FAERS Safety Report 18536457 (Version 16)
Quarter: 2022Q4

REPORT INFORMATION
  Report Type: Report from Study
  Country: ES (occurrence: ES)
  Receive Date: 20201124
  Receipt Date: 20221012
  Transmission Date: 20230113
  Serious: Yes (Hospitalization, Other)
  Sender: FDA-Public Use
  Company Number: ES-ABBVIE-20K-144-3656253-00

PATIENT
  Sex: Female

DRUGS (4)
  1. CARBIDOPA\LEVODOPA [Suspect]
     Active Substance: CARBIDOPA\LEVODOPA
     Indication: Parkinson^s disease
     Route: 050
     Dates: start: 20201104, end: 20201113
  2. CARBIDOPA\LEVODOPA [Suspect]
     Active Substance: CARBIDOPA\LEVODOPA
     Dosage: 11 ML MORNING DOSE, 2ML/H CONTINUOUS DOSE AND 2ML EXTRA DOSE
     Route: 050
     Dates: start: 20201209, end: 202012
  3. CARBIDOPA\LEVODOPA [Suspect]
     Active Substance: CARBIDOPA\LEVODOPA
     Dosage: 11 ML MORNING DOSE, 2ML/H CONTINUOUS DOSE AND 2ML EXTRA DOSE
     Route: 050
     Dates: start: 20201222, end: 202208
  4. CARBIDOPA\LEVODOPA [Suspect]
     Active Substance: CARBIDOPA\LEVODOPA
     Dosage: MORNING DOSE 9.5 ML, CONTINUOUS DOSE 3.3 ML/H AND EXTRA DOSE 2.5 ML
     Route: 050
     Dates: start: 202208

REACTIONS (17)
  - Necrotising fasciitis [Recovering/Resolving]
  - Abdominal infection [Recovering/Resolving]
  - General physical health deterioration [Recovering/Resolving]
  - Stoma site infection [Recovering/Resolving]
  - Gastrointestinal motility disorder [Unknown]
  - Malnutrition [Unknown]
  - Mobility decreased [Unknown]
  - Muscle atrophy [Unknown]
  - Hypophagia [Recovered/Resolved]
  - Somnolence [Unknown]
  - Dysphagia [Unknown]
  - Stoma site discomfort [Unknown]
  - Stoma site cellulitis [Recovering/Resolving]
  - Stoma site infection [Recovering/Resolving]
  - General physical condition abnormal [Unknown]
  - Device difficult to use [Unknown]
  - Device leakage [Unknown]

NARRATIVE: CASE EVENT DATE: 20200101
